FAERS Safety Report 14480129 (Version 1)
Quarter: 2018Q1

REPORT INFORMATION
  Report Type: Spontaneous
  Country: US (occurrence: US)
  Receive Date: 20180202
  Receipt Date: 20180202
  Transmission Date: 20180509
  Serious: Yes (Other)
  Sender: FDA-Public Use
  Company Number: US-GUERBET-US-20180020

PATIENT
  Age: 62 Year
  Sex: Female
  Weight: 104.3 kg

DRUGS (1)
  1. DOTAREM [Suspect]
     Active Substance: GADOTERATE MEGLUMINE
     Indication: NUCLEAR MAGNETIC RESONANCE IMAGING HEART
     Route: 042
     Dates: start: 20180122, end: 20180122

REACTIONS (5)
  - Urticaria [Recovered/Resolved]
  - Product use in unapproved indication [Recovered/Resolved]
  - Intentional overdose [Recovered/Resolved]
  - Erythema [Recovered/Resolved]
  - Pruritus [Recovered/Resolved]

NARRATIVE: CASE EVENT DATE: 20180122
